FAERS Safety Report 10220935 (Version 1)
Quarter: 2014Q2

REPORT INFORMATION
  Report Type: Spontaneous
  Country: US (occurrence: US)
  Receive Date: 20140606
  Receipt Date: 20140606
  Transmission Date: 20141212
  Serious: No
  Sender: FDA-Public Use
  Company Number: US-TEVA-485197USA

PATIENT
  Sex: Male
  Weight: 79 kg

DRUGS (2)
  1. AZILECT [Suspect]
     Indication: PARKINSON^S DISEASE
     Route: 048
     Dates: start: 2008
  2. SINEMET [Concomitant]

REACTIONS (2)
  - Fatigue [Unknown]
  - Somnolence [Unknown]
